FAERS Safety Report 7970275-0 (Version None)
Quarter: 2011Q4

REPORT INFORMATION
  Report Type: 
  Country: None (occurrence: None)
  Receive Date: 20111212
  Receipt Date: 20111201
  Transmission Date: 20120403
  Serious: Yes (Other)
  Sender: FDA-Public Use
  Company Number: CH-JNJFOC-20111201258

PATIENT
  Sex: Female

DRUGS (4)
  1. BILOL [Concomitant]
     Indication: PRODUCT USED FOR UNKNOWN INDICATION
     Route: 065
  2. REMICADE [Suspect]
     Indication: CROHN'S DISEASE
     Route: 042
     Dates: start: 20090201, end: 20110601
  3. CIMZIA [Suspect]
     Indication: CROHN'S DISEASE
     Route: 065
     Dates: start: 20110601, end: 20110921
  4. AZAMUN [Concomitant]
     Indication: CROHN'S DISEASE
     Route: 065

REACTIONS (2)
  - PERIPHERAL ARTERIAL OCCLUSIVE DISEASE [None]
  - ERYTHEMA MULTIFORME [None]
